FAERS Safety Report 16018204 (Version 1)
Quarter: 2019Q1

REPORT INFORMATION
  Report Type: Report from Study
  Country: US (occurrence: US)
  Receive Date: 20190228
  Receipt Date: 20190228
  Transmission Date: 20190418
  Serious: Yes (Hospitalization, Other)
  Sender: FDA-Public Use
  Company Number: US-GILEAD-2019-0393071

PATIENT
  Age: 17 Year
  Sex: Male

DRUGS (19)
  1. PROAIR HFA [Concomitant]
     Active Substance: ALBUTEROL SULFATE
     Dates: start: 20180625
  2. FLUTICASONE. [Concomitant]
     Active Substance: FLUTICASONE
     Dates: start: 20180625
  3. PREVACID [Concomitant]
     Active Substance: LANSOPRAZOLE
     Dates: start: 20160210
  4. ACETAMINOPHEN. [Concomitant]
     Active Substance: ACETAMINOPHEN
     Dates: start: 20180508
  5. VITAMIN D [Concomitant]
     Active Substance: CHOLECALCIFEROL
     Dates: start: 20180126
  6. AZTREONAM LYSINE [Suspect]
     Active Substance: AZTREONAM LYSINE
     Indication: CYSTIC FIBROSIS
     Dosage: 75 MG, TID, QD
     Route: 055
     Dates: start: 20151006
  7. PULMOZYME [Concomitant]
     Active Substance: DORNASE ALFA
     Dates: start: 20180508
  8. URSODIOL. [Concomitant]
     Active Substance: URSODIOL
     Dates: start: 20190213
  9. VITAMIN E [Concomitant]
     Active Substance: .ALPHA.-TOCOPHEROL
     Dates: start: 20160310
  10. IBU [Concomitant]
     Active Substance: IBUPROFEN
     Dates: start: 20180508
  11. SODIUM CHLORIDE. [Concomitant]
     Active Substance: SODIUM CHLORIDE
     Dates: start: 20180625
  12. SYMDEKO [Concomitant]
     Active Substance: IVACAFTOR\TEZACAFTOR
     Dosage: UNK
     Dates: start: 20190114
  13. TOBRAMYCIN. [Concomitant]
     Active Substance: TOBRAMYCIN
     Dates: start: 20190213
  14. ALBUTEROL HFA [Concomitant]
     Active Substance: ALBUTEROL SULFATE
     Dates: start: 20160310
  15. AZITHROMYCIN ANHYDROUS. [Concomitant]
     Active Substance: AZITHROMYCIN ANHYDROUS
     Dates: start: 20180625
  16. CETIRIZINE [Concomitant]
     Active Substance: CETIRIZINE HYDROCHLORIDE
     Dates: start: 20180625
  17. PHYTONADIONE. [Concomitant]
     Active Substance: PHYTONADIONE
     Dates: start: 20190219
  18. VITAMIN A [RETINOL] [Concomitant]
     Dates: start: 20160310
  19. ZENPEP [Concomitant]
     Active Substance: PANCRELIPASE AMYLASE\PANCRELIPASE LIPASE\PANCRELIPASE PROTEASE
     Dates: start: 20181219

REACTIONS (3)
  - Pneumonia [Recovered/Resolved]
  - Infection [Recovered/Resolved]
  - Intentional dose omission [Recovered/Resolved]

NARRATIVE: CASE EVENT DATE: 201902
